FAERS Safety Report 7948524-4 (Version None)
Quarter: 2011Q4

REPORT INFORMATION
  Report Type: 
  Country: None (occurrence: None)
  Receive Date: 20111130
  Receipt Date: 20111124
  Transmission Date: 20120403
  Serious: Yes (Hospitalization)
  Sender: FDA-Public Use
  Company Number: GB-AMGEN-GBRCT2011062274

PATIENT
  Age: 72 Year
  Sex: Male

DRUGS (8)
  1. PANITUMUMAB [Suspect]
     Indication: GASTRIC CANCER
     Dosage: UNK
     Dates: start: 20110816
  2. TRANEXAMIC ACID [Concomitant]
     Indication: HAEMORRHAGE
     Dosage: UNK
     Route: 042
     Dates: start: 20110914
  3. OMEPRAZOLE [Concomitant]
     Indication: DYSPEPSIA
     Dosage: 20 MG, QD
     Dates: start: 20110613
  4. FERROUS SULFATE TAB [Concomitant]
     Indication: ANAEMIA
     Dosage: 200 MG, BID
     Dates: start: 20110613
  5. ACETAMINOPHEN AND CODEINE PHOSPHATE [Concomitant]
     Indication: ABDOMINAL PAIN UPPER
     Dosage: UNK
     Dates: start: 20110816
  6. OXALIPLATIN [Concomitant]
     Dosage: UNK
     Dates: start: 20110816
  7. CAPECITABINE [Concomitant]
     Dosage: UNK
     Dates: start: 20110816
  8. EPIRUBICIN [Concomitant]
     Dosage: UNK
     Dates: start: 20110816

REACTIONS (2)
  - LOWER RESPIRATORY TRACT INFECTION [None]
  - ANAEMIA [None]
